FAERS Safety Report 7378099-2 (Version None)
Quarter: 2011Q1

REPORT INFORMATION
  Report Type: 
  Country: None (occurrence: None)
  Receive Date: 20110328
  Receipt Date: 20110305
  Transmission Date: 20110831
  Serious: No
  Sender: FDA-Public Use
  Company Number: US-B.I. PHARMACEUTICALS,INC./RIDGEFIELD-2011-BP-06974BP

PATIENT
  Age: 69 Year
  Sex: Female

DRUGS (6)
  1. AMITRIPTYLENE [Concomitant]
     Dosage: 100 MG
  2. BUMEX [Concomitant]
     Indication: FLUID RETENTION
     Dosage: 1 MG
  3. PRADAXA [Suspect]
     Indication: ATRIAL FIBRILLATION
     Dosage: 300 MG
     Route: 048
     Dates: start: 20110226
  4. SOTALOL HCL [Concomitant]
     Indication: ATRIAL FIBRILLATION
     Dosage: 180 MG
  5. SIMVASTATIN [Concomitant]
     Indication: BLOOD CHOLESTEROL INCREASED
     Dosage: 10 MG
  6. POTASSIUM ER [Concomitant]
     Indication: CARDIAC DISORDER
     Dosage: 20 MEQ

REACTIONS (1)
  - ARTHRALGIA [None]
